FAERS Safety Report 21166487 (Version 1)
Quarter: 2022Q3

REPORT INFORMATION
  Report Type: Spontaneous
  Country: US (occurrence: US)
  Receive Date: 20220803
  Receipt Date: 20220803
  Transmission Date: 20221026
  Serious: No
  Sender: FDA-Public Use
  Company Number: US-AMGEN-USASP2022131822

PATIENT
  Age: 75 Year
  Sex: Female

DRUGS (4)
  1. AIMOVIG [Suspect]
     Active Substance: ERENUMAB-AOOE
     Indication: Migraine
     Dosage: 70 MILLIGRAM, QMO
     Route: 065
  2. AIMOVIG [Suspect]
     Active Substance: ERENUMAB-AOOE
     Dosage: 140 MILLIGRAM, QMO
     Route: 065
  3. ADVIL [Concomitant]
     Active Substance: IBUPROFEN
     Indication: Migraine
     Dosage: UNK UNK, UNK
     Route: 065
     Dates: start: 20220731
  4. EXCEDRIN [Concomitant]
     Active Substance: ACETAMINOPHEN\ASPIRIN\CAFFEINE
     Indication: Migraine
     Dosage: UNK UNK, UNK
     Route: 065
     Dates: start: 20220731

REACTIONS (4)
  - Therapeutic product effect decreased [Unknown]
  - Visual impairment [Unknown]
  - Ophthalmic migraine [Unknown]
  - Photopsia [Unknown]

NARRATIVE: CASE EVENT DATE: 20220701
